FAERS Safety Report 15855339 (Version 1)
Quarter: 2019Q1

REPORT INFORMATION
  Report Type: Spontaneous
  Country: GB (occurrence: GB)
  Receive Date: 20190122
  Receipt Date: 20190122
  Transmission Date: 20190417
  Serious: Yes (Hospitalization)
  Sender: FDA-Public Use
  Company Number: GB-MYLANLABS-2019M1005044

PATIENT
  Age: 58 Year
  Sex: Male
  Weight: 74 kg

DRUGS (2)
  1. GABAPENTIN. [Suspect]
     Active Substance: GABAPENTIN
     Indication: NEURALGIA
     Dosage: 300 MILLIGRAM, QD
     Route: 048
     Dates: start: 20180621, end: 20180626
  2. COCODAMOL [Concomitant]
     Active Substance: ACETAMINOPHEN\CODEINE PHOSPHATE

REACTIONS (4)
  - Thinking abnormal [Recovering/Resolving]
  - Dysarthria [Recovering/Resolving]
  - Dizziness [Not Recovered/Not Resolved]
  - Balance disorder [Recovering/Resolving]

NARRATIVE: CASE EVENT DATE: 20180625
